FAERS Safety Report 6202929-0 (Version None)
Quarter: 2009Q2

REPORT INFORMATION
  Report Type: 
  Country: None (occurrence: None)
  Receive Date: 20090526
  Receipt Date: 20090520
  Transmission Date: 20091009
  Serious: Yes (Hospitalization)
  Sender: FDA-Public Use
  Company Number: SE-ABBOTT-09P-150-0568498-00

PATIENT
  Sex: Female

DRUGS (1)
  1. HUMIRA [Suspect]
     Indication: RHEUMATOID ARTHRITIS
     Dosage: LONG-TERM TREATMENT
     Route: 058

REACTIONS (3)
  - COUGH [None]
  - HAEMATOMA [None]
  - PAIN [None]
